FAERS Safety Report 6979296-8 (Version None)
Quarter: 2010Q3

REPORT INFORMATION
  Report Type: 
  Country: None (occurrence: None)
  Receive Date: 20100913
  Receipt Date: 20100902
  Transmission Date: 20110219
  Serious: Yes (Hospitalization)
  Sender: FDA-Public Use
  Company Number: JP-JNJFOC-20100808492

PATIENT
  Sex: Female
  Weight: 50 kg

DRUGS (11)
  1. REMICADE [Suspect]
     Indication: RHEUMATOID ARTHRITIS
     Route: 042
  2. REMICADE [Suspect]
     Route: 042
  3. REMICADE [Suspect]
     Dosage: INFUSION 2-4 ON UNSPECIFIED DATES IN 2010
     Route: 042
  4. PREDONINE [Suspect]
     Indication: RHEUMATOID ARTHRITIS
     Route: 048
  5. RHEUMATREX [Suspect]
     Indication: RHEUMATOID ARTHRITIS
     Route: 048
  6. RHEUMATREX [Suspect]
     Route: 048
  7. AMARYL [Concomitant]
     Indication: DIABETES MELLITUS
     Route: 048
  8. OLMETEC [Concomitant]
     Indication: HYPERTENSION
     Route: 048
  9. ACTONEL [Concomitant]
     Indication: OSTEOPOROSIS
     Route: 048
  10. CELECOX [Concomitant]
     Indication: RHEUMATOID ARTHRITIS
     Route: 048
  11. FOLIAMIN [Concomitant]
     Indication: PROPHYLAXIS
     Route: 048

REACTIONS (2)
  - BRAIN ABSCESS [None]
  - NASOPHARYNGITIS [None]
